FAERS Safety Report 5465052-9 (Version None)
Quarter: 2007Q3

REPORT INFORMATION
  Report Type: 
  Country: None (occurrence: None)
  Receive Date: 20070922
  Receipt Date: 20070821
  Transmission Date: 20080115
  Serious: Yes (Hospitalization)
  Sender: FDA-Public Use
  Company Number: DE-RANBAXY-2007RR-09454

PATIENT

DRUGS (14)
  1. MIDAZOLAM HCL [Suspect]
     Indication: GENERAL ANAESTHESIA
     Dosage: 5 MG, UNK
  2. ETOMIDATE [Suspect]
     Indication: GENERAL ANAESTHESIA
     Dosage: 20 MG, UNK
  3. SUFENTANIL CITRATE [Suspect]
     Indication: GENERAL ANAESTHESIA
     Dosage: 10 UG, UNK
  4. RECURONIUM BROMIDE [Suspect]
     Indication: GENERAL ANAESTHESIA
     Dosage: 30 MG, UNK
  5. PROPOFOL [Suspect]
     Indication: GENERAL ANAESTHESIA
     Dosage: 300 MG/H, UNK
  6. PROPOFOL [Suspect]
     Dosage: 250 MG/H, UNK
  7. METOPROLOL BASICS 100MG [Concomitant]
  8. ENALAPRIL BASICS 10 MG [Concomitant]
  9. FUROSEMID BASICS 40 MG TABLETTE [Concomitant]
  10. ASPIRIN [Concomitant]
  11. DOBUTAMINE HCL [Concomitant]
  12. NOREPINEPHRINE [Concomitant]
     Indication: HYPOTENSION
  13. MEPIVACAINE HCL [Concomitant]
     Indication: LOCAL ANAESTHESIA
  14. ENOXAPARIN SODIUM [Concomitant]
     Dosage: UNK

REACTIONS (3)
  - CARDIOVASCULAR INSUFFICIENCY [None]
  - HYPOTENSION [None]
  - RENAL IMPAIRMENT [None]
